FAERS Safety Report 8832244 (Version 1)
Quarter: 2012Q4

REPORT INFORMATION
  Report Type: 
  Country: MX (occurrence: MX)
  Receive Date: 20121009
  Receipt Date: 20121009
  Transmission Date: 20130627
  Serious: Yes (Other)
  Sender: FDA-Public Use
  Company Number: PHHY2012MX058528

PATIENT
  Sex: Male

DRUGS (4)
  1. EXFORGE [Suspect]
     Indication: HYPERTENSION
     Dosage: 1 DF, QD
     Dates: start: 200501
  2. BAB EX [Concomitant]
     Indication: DIABETES MELLITUS
     Dosage: 1 DF, BID
     Dates: start: 201206
  3. SELOKEN [Concomitant]
     Indication: DIZZINESS
     Dosage: 1 DF, QD
     Dates: start: 2010
  4. METFORMIN [Concomitant]
     Indication: DIABETES MELLITUS
     Dosage: 3 DF, UNK
     Dates: start: 201208

REACTIONS (5)
  - Kidney infection [Recovered/Resolved]
  - Pyrexia [Recovered/Resolved]
  - Back pain [Recovered/Resolved]
  - Diabetes mellitus inadequate control [Not Recovered/Not Resolved]
  - Muscle spasms [Unknown]
